FAERS Safety Report 14693682 (Version 2)
Quarter: 2018Q2

REPORT INFORMATION
  Report Type: Spontaneous
  Country: US (occurrence: US)
  Receive Date: 20180329
  Receipt Date: 20180404
  Transmission Date: 20180711
  Serious: Yes (Hospitalization, Other)
  Sender: FDA-Public Use
  Company Number: US-PFIZER INC-2017248406

PATIENT
  Age: 71 Year
  Sex: Female
  Weight: 47 kg

DRUGS (4)
  1. PRAVASTATIN. [Concomitant]
     Active Substance: PRAVASTATIN
     Indication: GASTROOESOPHAGEAL REFLUX DISEASE
     Dosage: 40 MG, 2X/DAY [BEFORE BREAKFAST AND BEFORE DINNER]
     Route: 048
  2. ELIQUIS [Suspect]
     Active Substance: APIXABAN
     Dosage: 5 MG, 2X/DAY
     Route: 048
     Dates: start: 20160810, end: 20170425
  3. XELJANZ [Suspect]
     Active Substance: TOFACITINIB CITRATE
     Indication: RHEUMATOID ARTHRITIS
  4. PANTOPRAZOLE [Concomitant]
     Active Substance: PANTOPRAZOLE
     Indication: GASTROOESOPHAGEAL REFLUX DISEASE
     Dosage: 40 MG, 2X/DAY BEFORE BREAKFAST AND BEFORE DINNER
     Route: 048

REACTIONS (4)
  - Condition aggravated [Recovered/Resolved]
  - Haemorrhage [Recovered/Resolved]
  - Fatigue [Unknown]
  - Haemoglobin decreased [Recovered/Resolved]

NARRATIVE: CASE EVENT DATE: 20170425
